FAERS Safety Report 9338247 (Version 1)
Quarter: 2013Q2

REPORT INFORMATION
  Report Type: Spontaneous
  Country: US (occurrence: None)
  Receive Date: 20130605
  Receipt Date: 20130605
  Transmission Date: 20140414
  Serious: Yes (Hospitalization)
  Sender: FDA-Public Use
  Company Number: None

PATIENT
  Age: 46 Year
  Sex: Female
  Weight: 92.53 kg

DRUGS (4)
  1. QSYMIA [Suspect]
     Indication: POLYCYSTIC OVARIES
     Dosage: ?ASPH20SL   ?JUN2014 (LOT)
     Route: 048
     Dates: start: 20121130, end: 20121214
  2. QSYMIA [Suspect]
     Indication: OBESITY
     Dosage: ?ASPH20SL   ?JUN2014 (LOT)
     Route: 048
     Dates: start: 20121130, end: 20121214
  3. QSYMIA [Suspect]
     Indication: INSULIN RESISTANCE
     Dosage: ?ASPH20SL   ?JUN2014 (LOT)
     Route: 048
     Dates: start: 20121130, end: 20121214
  4. VICTOZA [Concomitant]

REACTIONS (2)
  - Aspartate aminotransferase increased [None]
  - Alanine aminotransferase increased [None]
